FAERS Safety Report 22018677 (Version 4)
Quarter: 2023Q2

REPORT INFORMATION
  Report Type: Report from Study
  Country: US (occurrence: US)
  Receive Date: 20230222
  Receipt Date: 20230615
  Transmission Date: 20230721
  Serious: No
  Sender: FDA-Public Use
  Company Number: US-002147023-NVSC2023US038635

PATIENT
  Sex: Female

DRUGS (1)
  1. KESIMPTA [Suspect]
     Active Substance: OFATUMUMAB
     Indication: Product used for unknown indication
     Dosage: UNK
     Route: 065
     Dates: start: 20221206

REACTIONS (7)
  - Depression [Unknown]
  - Gait disturbance [Unknown]
  - Weight increased [Unknown]
  - Pain [Unknown]
  - Pain in extremity [Unknown]
  - Hypoaesthesia [Unknown]
  - Fatigue [Unknown]
